FAERS Safety Report 10231788 (Version 2)
Quarter: 2014Q3

REPORT INFORMATION
  Report Type: Spontaneous
  Country: EG (occurrence: EG)
  Receive Date: 20140612
  Receipt Date: 20140822
  Transmission Date: 20150326
  Serious: Yes (Other)
  Sender: FDA-Public Use
  Company Number: EG-ROCHE-1415683

PATIENT
  Age: 78 Year
  Sex: Female
  Weight: 80 kg

DRUGS (2)
  1. ALPHAGAN P [Concomitant]
     Active Substance: BRIMONIDINE TARTRATE
     Indication: INTRAOCULAR PRESSURE TEST
     Dosage: DROPS
     Route: 065
  2. LUCENTIS [Suspect]
     Active Substance: RANIBIZUMAB
     Indication: DIABETIC RETINAL OEDEMA
     Dosage: 1 VIAL ONCE
     Route: 050
     Dates: start: 20140522

REACTIONS (1)
  - Cerebrovascular accident [Unknown]
